FAERS Safety Report 7397611-0 (Version None)
Quarter: 2011Q2

REPORT INFORMATION
  Report Type: 
  Country: None (occurrence: None)
  Receive Date: 20110406
  Receipt Date: 20110328
  Transmission Date: 20111010
  Serious: Yes (Hospitalization)
  Sender: FDA-Public Use
  Company Number: FR-NAPPMUNDI-GBR-2011-0008005

PATIENT
  Age: 74 Year
  Sex: Female

DRUGS (5)
  1. ACETAMINOPHEN [Concomitant]
  2. BRICANYL [Concomitant]
  3. OXYCONTIN LP 5 MG, COMPRIME PELLICULE A LIBERATION PROLONGEE [Suspect]
     Indication: OSTEOPOROSIS
     Dosage: 5 MG, UNK
     Route: 048
     Dates: end: 20100720
  4. SYMBICORT [Concomitant]
     Dosage: 400 MCG, UNK
  5. SPIRIVA [Concomitant]

REACTIONS (5)
  - RESPIRATORY DISTRESS [None]
  - DISORIENTATION [None]
  - RESPIRATORY ACIDOSIS [None]
  - HALLUCINATION [None]
  - SPEECH DISORDER [None]
